FAERS Safety Report 5266951-3 (Version None)
Quarter: 2007Q1

REPORT INFORMATION
  Report Type: 
  Country: None (occurrence: None)
  Receive Date: 20070312
  Receipt Date: 20070227
  Transmission Date: 20070707
  Serious: Yes (Death, Hospitalization)
  Sender: FDA-Public Use
  Company Number: MEDI-0005212

PATIENT
  Age: 77 Year
  Sex: Female
  Weight: 61.6892 kg

DRUGS (6)
  1. ETHYOL [Suspect]
     Indication: RADIOTHERAPY
     Dosage: 500 MG, 5 IN 5 D, SUBCUTANEOUS
     Route: 058
     Dates: start: 20060419, end: 20060510
  2. ETHYOL [Suspect]
     Indication: RADIOTHERAPY
     Dosage: 500 MG, 5 IN 5 D, SUBCUTANEOUS
     Route: 058
     Dates: start: 20060511, end: 20060518
  3. CISPLATIN [Concomitant]
  4. GEMCITABINE (CEMCITABINE) [Concomitant]
  5. RADIATION THERAPY [Concomitant]
  6. ZYRTEC [Concomitant]

REACTIONS (17)
  - ARTHRALGIA [None]
  - BLADDER CANCER [None]
  - DIARRHOEA [None]
  - INJECTION SITE ERYTHEMA [None]
  - INJECTION SITE IRRITATION [None]
  - INJECTION SITE PAPULE [None]
  - INJECTION SITE REACTION [None]
  - METASTASES TO BONE [None]
  - METASTASES TO LIVER [None]
  - METASTASES TO LUNG [None]
  - METASTASES TO LYMPH NODES [None]
  - NAUSEA [None]
  - PNEUMONIA [None]
  - PRURITUS [None]
  - RESPIRATORY ARREST [None]
  - SKIN DISORDER [None]
  - THERMAL BURN [None]
